FAERS Safety Report 10026639 (Version 1)
Quarter: 2014Q1

REPORT INFORMATION
  Report Type: Spontaneous
  Country: US (occurrence: US)
  Receive Date: 20140321
  Receipt Date: 20140321
  Transmission Date: 20141002
  Serious: No
  Sender: FDA-Public Use
  Company Number: US-009507513-1402USA013509

PATIENT
  Sex: Male

DRUGS (6)
  1. REBETOL [Suspect]
     Indication: HEPATITIS C
     Dosage: 600 MG AM AND PM, TWICE A DAY
     Route: 048
     Dates: start: 20140224
  2. PEGINTRON [Suspect]
     Indication: HEPATITIS C
     Dosage: REDIPEN 0.5 ML, ONCE A WEEK
     Route: 058
     Dates: start: 20140224
  3. SOVALDI [Concomitant]
     Dosage: 1 DF, QD
  4. HYDROCHLOROTHIAZIDE (+) TRIAMTERENE [Concomitant]
     Dosage: 1 DF, QD
     Route: 048
  5. HYDRALAZINE [Concomitant]
     Dosage: 1 DF, BID
     Route: 048
  6. DILTIAZEM HYDROCHLORIDE [Concomitant]
     Dosage: 1 DF, QD
     Route: 048

REACTIONS (4)
  - Injection site erythema [Unknown]
  - Hyperhidrosis [Unknown]
  - Feeling cold [Unknown]
  - Injection site pruritus [Unknown]
